FAERS Safety Report 4416668-X (Version None)
Quarter: 2004Q3

REPORT INFORMATION
  Report Type: 
  Country: None (occurrence: None)
  Receive Date: 20040802
  Receipt Date: 20040719
  Transmission Date: 20050211
  Serious: Yes (Death)
  Sender: FDA-Public Use
  Company Number: US-2004-027639

PATIENT
  Age: 76 Year
  Sex: Male
  Weight: 78.9 kg

DRUGS (1)
  1. MAGNEVIST [Suspect]
     Indication: ANGIOGRAM
     Dosage: 20 ML AT 2 ML/SEC, INTRAVENOUS
     Route: 042
     Dates: start: 20040623, end: 20040623

REACTIONS (7)
  - COMA [None]
  - CONTRAST MEDIA REACTION [None]
  - MYOCARDIAL INFARCTION [None]
  - PULSE ABNORMAL [None]
  - PULSE ABSENT [None]
  - PULSE PRESSURE DECREASED [None]
  - RESPIRATORY DISORDER [None]
